FAERS Safety Report 10103529 (Version 1)
Quarter: 2014Q2

REPORT INFORMATION
  Report Type: Spontaneous
  Country: US (occurrence: US)
  Receive Date: 20140424
  Receipt Date: 20140424
  Transmission Date: 20141212
  Serious: No
  Sender: FDA-Public Use
  Company Number: US-BRISTOL-MYERS SQUIBB COMPANY-20513198

PATIENT
  Age: 90 Year
  Sex: Female

DRUGS (10)
  1. ELIQUIS [Suspect]
  2. METOPROLOL [Concomitant]
  3. LOSARTAN [Concomitant]
  4. LASIX [Concomitant]
  5. OMEPRAZOLE [Concomitant]
  6. SIMVASTATIN [Concomitant]
  7. MICRO-K [Concomitant]
  8. ASA [Concomitant]
  9. METAMUCIL [Concomitant]
  10. MILK OF MAGNESIA [Concomitant]

REACTIONS (1)
  - Onychoclasis [Unknown]
